FAERS Safety Report 23949000 (Version 1)
Quarter: 2024Q2

REPORT INFORMATION
  Report Type: Spontaneous
  Country: GB (occurrence: GB)
  Receive Date: 20240607
  Receipt Date: 20240607
  Transmission Date: 20240716
  Serious: Yes (Hospitalization, Other)
  Sender: FDA-Public Use
  Company Number: None

PATIENT
  Age: 50 Year
  Sex: Male
  Weight: 109.8 kg

DRUGS (1)
  1. INDOMETHACIN [Suspect]
     Active Substance: INDOMETHACIN
     Indication: Headache
     Dosage: 100 MG ON EACH SIDE OF THE GLUTEAL MUSCLES.
     Route: 030

REACTIONS (6)
  - Delusion [Recovered/Resolved]
  - Dizziness [Recovering/Resolving]
  - Acute psychosis [Recovered/Resolved]
  - Aggression [Recovered/Resolved]
  - Chest pain [Recovering/Resolving]
  - Loss of consciousness [Recovered/Resolved]
